FAERS Safety Report 7979437-X (Version None)
Quarter: 2011Q4

REPORT INFORMATION
  Report Type: 
  Country: None (occurrence: None)
  Receive Date: 20111214
  Receipt Date: 20111208
  Transmission Date: 20120403
  Serious: Yes (Other)
  Sender: FDA-Public Use
  Company Number: PHHY2010CA60708

PATIENT
  Sex: Female

DRUGS (4)
  1. CALCIUM [Concomitant]
     Dosage: 500 MG, BID
     Dates: start: 19880101
  2. VITAMIN D [Concomitant]
     Dosage: 400 MG, BID
  3. ZOLEDRONOC ACID [Suspect]
     Route: 042
  4. ACTONEL [Concomitant]
     Dosage: 35 MG/WEEKLY
     Dates: start: 20050702

REACTIONS (3)
  - RENAL FAILURE CHRONIC [None]
  - BUNION [None]
  - FOOT DEFORMITY [None]
